FAERS Safety Report 4430633-8 (Version None)
Quarter: 2004Q3

REPORT INFORMATION
  Report Type: 
  Country: None (occurrence: None)
  Receive Date: 20040817
  Receipt Date: 20040804
  Transmission Date: 20050211
  Serious: Yes (Hospitalization, Other)
  Sender: FDA-Public Use
  Company Number: 2004052944

PATIENT
  Age: 74 Year
  Sex: Female

DRUGS (1)
  1. ATORVASTATIN CALCIUM [Suspect]
     Indication: DYSLIPIDAEMIA
     Dosage: 1 IN 1 D, ORAL
     Route: 048
     Dates: start: 20030615, end: 20040606

REACTIONS (7)
  - ANGIOPATHY [None]
  - DYSPHONIA [None]
  - EOSINOPHILIA [None]
  - ERYTHEMA [None]
  - MYALGIA [None]
  - PARANEOPLASTIC SYNDROME [None]
  - POLYMYOSITIS [None]
